FAERS Safety Report 6341667-0 (Version None)
Quarter: 2009Q3

REPORT INFORMATION
  Report Type: 
  Country: None (occurrence: None)
  Receive Date: 20090904
  Receipt Date: 20090903
  Transmission Date: 20100115
  Serious: Yes (Death, Life-Threatening, Hospitalization, Other)
  Sender: FDA-Public Use
  Company Number: FR-ROXANE LABORATORIES, INC.-2009-RO-00895RO

PATIENT
  Weight: 56 kg

DRUGS (4)
  1. DIGOXIN [Suspect]
  2. DIGIDOT [Concomitant]
     Indication: DRUG TOXICITY
  3. DOBUTAMINE HCL [Concomitant]
     Indication: CARDIOGENIC SHOCK
  4. ISOPRENALINE HCL [Concomitant]
     Indication: CARDIOGENIC SHOCK

REACTIONS (4)
  - ARRHYTHMIA [None]
  - CARDIAC FAILURE [None]
  - CARDIOGENIC SHOCK [None]
  - DRUG TOXICITY [None]
